FAERS Safety Report 5673380-7 (Version None)
Quarter: 2008Q1

REPORT INFORMATION
  Report Type: 
  Country: None (occurrence: None)
  Receive Date: 20080319
  Receipt Date: 20080128
  Transmission Date: 20080703
  Serious: Yes (Death)
  Sender: FDA-Public Use
  Company Number: US-TYCO HEALTHCARE/MALLINCKRODT-T200800353

PATIENT

DRUGS (6)
  1. PAMELOR [Suspect]
     Route: 048
  2. DOXEPIN HCL [Suspect]
     Route: 048
  3. ACETAMINOPHEN [Suspect]
     Route: 048
  4. BARBITURATES [Suspect]
     Route: 048
  5. BENZODIAZEPINE DERIVATIVES [Suspect]
     Route: 048
  6. OPIOIDS [Suspect]
     Route: 048

REACTIONS (1)
  - COMPLETED SUICIDE [None]
